FAERS Safety Report 25743688 (Version 2)
Quarter: 2025Q3

REPORT INFORMATION
  Report Type: Spontaneous
  Country: US (occurrence: US)
  Receive Date: 20250831
  Receipt Date: 20250831
  Transmission Date: 20251020
  Serious: Yes (Other)
  Sender: IPSEN BIOPHARMACEUTICALS, INC.
  Company Number: US-IPSEN Group, Research and Development-2025-20943

PATIENT

DRUGS (2)
  1. IQIRVO [Suspect]
     Active Substance: ELAFIBRANOR
     Indication: Product used for unknown indication
  2. URSO [Suspect]
     Active Substance: URSODIOL
     Indication: Product used for unknown indication

REACTIONS (2)
  - Urinary retention [Unknown]
  - Urine output decreased [Unknown]
